FAERS Safety Report 14462177 (Version 4)
Quarter: 2018Q2

REPORT INFORMATION
  Report Type: Report from Study
  Country: HK (occurrence: HK)
  Receive Date: 20180130
  Receipt Date: 20180403
  Transmission Date: 20180711
  Serious: Yes (Hospitalization)
  Sender: FDA-Public Use
  Company Number: HK-EXELIXIS-XL18418012117

PATIENT
  Age: 72 Year
  Sex: Male
  Weight: 76 kg

DRUGS (15)
  1. LOPERAMIDE [Concomitant]
     Active Substance: LOPERAMIDE
  2. PANADOL [Concomitant]
     Active Substance: ACETAMINOPHEN
  3. SIMVASTATIN. [Concomitant]
     Active Substance: SIMVASTATIN
  4. UREA. [Concomitant]
     Active Substance: UREA
  5. SLOW K [Concomitant]
     Active Substance: POTASSIUM CHLORIDE
  6. TRAMADOL. [Concomitant]
     Active Substance: TRAMADOL
  7. MINIPRESS [Concomitant]
     Active Substance: PRAZOSIN HYDROCHLORIDE
  8. LISINOPRIL. [Concomitant]
     Active Substance: LISINOPRIL
  9. METFORMIN [Concomitant]
     Active Substance: METFORMIN HYDROCHLORIDE
  10. XL184 [Suspect]
     Active Substance: CABOZANTINIB
     Indication: HEPATOCELLULAR CARCINOMA
     Dosage: 60 MG, QD
     Route: 048
     Dates: start: 20171218, end: 20180114
  11. ENTECAVIR. [Concomitant]
     Active Substance: ENTECAVIR
  12. DIAMICRON [Concomitant]
     Active Substance: GLICLAZIDE
  13. ADALAT [Concomitant]
     Active Substance: NIFEDIPINE
  14. XL184 [Suspect]
     Active Substance: CABOZANTINIB
     Dosage: 40 MG, QD
     Route: 048
     Dates: start: 20180209
  15. BETALOC [Concomitant]
     Active Substance: METOPROLOL TARTRATE

REACTIONS (1)
  - Cellulitis [Recovered/Resolved]

NARRATIVE: CASE EVENT DATE: 20180122
